FAERS Safety Report 23830421 (Version 1)
Quarter: 2024Q2

REPORT INFORMATION
  Report Type: Spontaneous
  Country: CN (occurrence: CN)
  Receive Date: 20240508
  Receipt Date: 20240508
  Transmission Date: 20240716
  Serious: Yes (Hospitalization)
  Sender: FDA-Public Use
  Company Number: CN-CPL-004208

PATIENT
  Age: 72 Year
  Sex: Male

DRUGS (14)
  1. PREGABALIN [Suspect]
     Active Substance: PREGABALIN
     Indication: Neuralgia
  2. ACYCLOVIR [Concomitant]
     Active Substance: ACYCLOVIR
     Indication: Neuralgia
  3. IBUPROFEN [Concomitant]
     Active Substance: IBUPROFEN
     Indication: Neuralgia
  4. CODEINE PHOSPHATE [Concomitant]
     Active Substance: CODEINE PHOSPHATE
     Indication: Neuralgia
     Dosage: 0.2 G/12.5 MG, EVERY 6 HOURS
  5. OXYCODONE [Concomitant]
     Active Substance: OXYCODONE\OXYCODONE HYDROCHLORIDE
     Indication: Neuralgia
  6. ACETAMINOPHEN [Concomitant]
     Active Substance: ACETAMINOPHEN
     Indication: Neuralgia
     Dosage: 5 MG/325 MG, EVERY 6 HOURS
  7. ACYCLOVIR [Concomitant]
     Active Substance: ACYCLOVIR
     Indication: Neuralgia
  8. GLIQUIDONE [Concomitant]
     Active Substance: GLIQUIDONE
     Indication: Blood glucose
  9. MORPHINE HYDROCHLORIDE [Concomitant]
     Active Substance: MORPHINE HYDROCHLORIDE
     Indication: Pain management
     Dosage: 5 MG, AS NEEDED
  10. DICLOFENAC SODIUM [Concomitant]
     Active Substance: DICLOFENAC\DICLOFENAC SODIUM
     Indication: Pain management
     Dosage: DUAL RELEASE ENTERIC-COATED?CAPSULES
  11. ROPIVACAINE [Concomitant]
     Active Substance: ROPIVACAINE
     Indication: Pain management
     Dosage: 2.5 ML OF 0.2%
  12. DIPROSPAN [Concomitant]
     Active Substance: BETAMETHASONE DIPROPIONATE\BETAMETHASONE SODIUM PHOSPHATE
     Indication: Pain management
     Dosage: 7 MG/ML
  13. PREGABALIN [Suspect]
     Active Substance: PREGABALIN
     Indication: Herpes zoster
  14. OXYCODONE [Concomitant]
     Active Substance: OXYCODONE\OXYCODONE HYDROCHLORIDE
     Indication: Herpes zoster

REACTIONS (1)
  - Type IV hypersensitivity reaction [Recovered/Resolved]
